FAERS Safety Report 10026747 (Version 1)
Quarter: 2014Q1

REPORT INFORMATION
  Report Type: Spontaneous
  Country: IN (occurrence: None)
  Receive Date: 20140318
  Receipt Date: 20140318
  Transmission Date: 20141002
  Serious: Yes (Death, Hospitalization)
  Sender: FDA-Public Use
  Company Number: 2014P1002004

PATIENT
  Age: 26 Year
  Sex: Male

DRUGS (2)
  1. HEPARIN [Suspect]
     Route: 042
  2. DEXAMETHASONE [Suspect]
     Route: 042

REACTIONS (22)
  - Substance abuse [None]
  - Muscular weakness [None]
  - Hyperkalaemia [None]
  - Tachypnoea [None]
  - Heart rate increased [None]
  - Shock [None]
  - Septic shock [None]
  - Ventricular dysfunction [None]
  - Metabolic acidosis [None]
  - Lactic acidosis [None]
  - Blood creatine phosphokinase increased [None]
  - Dialysis [None]
  - Ventricular fibrillation [None]
  - Blister [None]
  - Coagulopathy [None]
  - Thrombocytopenia [None]
  - General physical health deterioration [None]
  - Leptospirosis [None]
  - Staphylococcal infection [None]
  - Upper gastrointestinal haemorrhage [None]
  - Pneumonia [None]
  - Cardiac arrest [None]
